FAERS Safety Report 8816598 (Version 1)
Quarter: 2012Q4

REPORT INFORMATION
  Report Type: Spontaneous
  Country: US (occurrence: None)
  Receive Date: 20121001
  Receipt Date: 20121001
  Transmission Date: 20130627
  Serious: Yes (Other)
  Sender: FDA-Public Use
  Company Number: None

PATIENT
  Age: 71 Year
  Sex: Female
  Weight: 281.2 kg

DRUGS (9)
  1. PRANACTIN-CITRIC [Suspect]
     Indication: BACTERIAL TEST
     Dosage: DF dosage form, oral
     Route: 048
     Dates: start: 20120730, end: 20120730
  2. ZETIA (CLOPIDOGREL SULFATE) [Concomitant]
  3. PLAVIX (CLOPIDOGREL SULFATE) [Concomitant]
  4. DIGOXIN (DIGOXIN) [Concomitant]
  5. WARFARIN SODIUM (WARFARIN SODIUM) [Concomitant]
  6. FLECAINIDE ACETATE (FLECAINIDE ACETATE) [Concomitant]
  7. METOPROLOL (METOPROLOL TARTRATE) [Concomitant]
  8. CRESTOR (ROSUVASTATIN CALCIUM) [Concomitant]
  9. ATIVAN (LORAZEPAM) [Concomitant]

REACTIONS (4)
  - Atrial fibrillation [None]
  - Ventricular extrasystoles [None]
  - Palpitations [None]
  - Heart rate irregular [None]
